FAERS Safety Report 4378508-7 (Version None)
Quarter: 2004Q2

REPORT INFORMATION
  Report Type: 
  Country: None (occurrence: None)
  Receive Date: 20040609
  Receipt Date: 20040527
  Transmission Date: 20050107
  Serious: Yes (Hospitalization, Other)
  Sender: FDA-Public Use
  Company Number: 2004029398

PATIENT
  Age: 45 Year
  Sex: Male
  Weight: 66.2252 kg

DRUGS (16)
  1. NEURONTIN [Suspect]
     Indication: CONVULSION
     Dosage: 3600 MG (3 IN 1 D), ORAL
     Route: 048
     Dates: start: 20040109, end: 20040331
  2. TEMOZOLOMIDE (TEMOZOLOMIDE) [Suspect]
     Indication: GLIOBLASTOMA MULTIFORME
     Dosage: 80 MG (1 IN 1 D), ORAL
     Route: 048
     Dates: start: 20040210, end: 20040323
  3. BACTRIM [Suspect]
     Indication: INFECTION PROPHYLAXIS
     Dosage: (BID), ORAL
     Route: 048
     Dates: start: 20020801, end: 20040323
  4. BACTRIM [Suspect]
     Indication: PNEUMOCYSTIS CARINII INFECTION
     Dosage: (BID), ORAL
     Route: 048
     Dates: start: 20020801, end: 20040323
  5. LEVOFLOXACIN [Suspect]
     Indication: UPPER RESPIRATORY TRACT INFECTION
     Dosage: 500 MG (500 MG, DAILY), ORAL
     Route: 048
     Dates: start: 20040301, end: 20040301
  6. THALOMID [Suspect]
     Indication: BRAIN NEOPLASM
     Dosage: 1200 MG (1200 MG, DAILY
     Dates: start: 20030701, end: 20040323
  7. HEPARIN [Suspect]
     Indication: ILL-DEFINED DISORDER
     Dosage: INTRAVENOUS
     Route: 042
  8. FAMCICLOVIR (FAMCICLOVIR) [Concomitant]
  9. CODEINE (CODEINE) [Concomitant]
  10. PHENOBARBITAL TAB [Concomitant]
  11. ACETYLSALICYLIC ACID SRT [Concomitant]
  12. HEPARIN-FRACTION, SODIUM SALT (HEPARIN-FRACTION, SODIUM SALT) [Concomitant]
  13. CARMUSTINE [Concomitant]
  14. PACLITAXEL [Concomitant]
  15. IRINOTECAN (IRINOTECAN) [Concomitant]
  16. CEFTRIAXONE [Concomitant]

REACTIONS (18)
  - APLASTIC ANAEMIA [None]
  - BACTERIAL SEPSIS [None]
  - BONE MARROW DEPRESSION [None]
  - BRONCHITIS [None]
  - CONJUNCTIVAL HAEMORRHAGE [None]
  - COUGH [None]
  - EAR PAIN [None]
  - HEADACHE [None]
  - HERPETIC STOMATITIS [None]
  - IMPLANT SITE INFECTION [None]
  - IMPLANT SITE REACTION [None]
  - MALAISE [None]
  - MYALGIA [None]
  - PETECHIAE [None]
  - PYREXIA [None]
  - SEPSIS [None]
  - TENDERNESS [None]
  - UPPER RESPIRATORY TRACT INFECTION [None]
